FAERS Safety Report 7446765-6 (Version None)
Quarter: 2011Q2

REPORT INFORMATION
  Report Type: 
  Country: None (occurrence: None)
  Receive Date: 20110429
  Receipt Date: 20101102
  Transmission Date: 20111010
  Serious: No
  Sender: FDA-Public Use
  Company Number: US-ASTRAZENECA-2010SE51204

PATIENT
  Sex: Female

DRUGS (1)
  1. NEXIUM [Suspect]
     Route: 048
     Dates: start: 20090101

REACTIONS (5)
  - MALAISE [None]
  - GASTROENTERITIS VIRAL [None]
  - SURGERY [None]
  - PAIN [None]
  - DRUG DOSE OMISSION [None]
